FAERS Safety Report 4608805-9 (Version None)
Quarter: 2005Q1

REPORT INFORMATION
  Report Type: 
  Country: None (occurrence: None)
  Receive Date: 20050315
  Receipt Date: 20050225
  Transmission Date: 20050727
  Serious: Yes (Hospitalization)
  Sender: FDA-Public Use
  Company Number: BW-BRISTOL-MYERS SQUIBB COMPANY-12877155

PATIENT
  Age: 34 Year
  Sex: Male

DRUGS (6)
  1. EFAVIRENZ [Suspect]
     Indication: HIV INFECTION
     Route: 048
     Dates: start: 20040805
  2. STAVUDINE [Suspect]
     Indication: HIV INFECTION
     Route: 048
     Dates: start: 20040916
  3. COMBIVIR [Suspect]
     Indication: HIV INFECTION
     Dosage: ^900 MG^ DAILY
     Dates: start: 20040805
  4. LAMIVUDINE [Suspect]
     Indication: HIV INFECTION
     Route: 048
     Dates: start: 20040916
  5. FERROUS SULFATE TAB [Concomitant]
     Dates: start: 20041217
  6. FOLIC ACID [Concomitant]
     Dates: start: 20041217

REACTIONS (4)
  - ANAEMIA [None]
  - DEHYDRATION [None]
  - DIARRHOEA [None]
  - RESPIRATORY TRACT INFECTION [None]
